FAERS Safety Report 10143045 (Version 2)
Quarter: 2014Q3

REPORT INFORMATION
  Report Type: Spontaneous
  Country: CZ (occurrence: CZ)
  Receive Date: 20140430
  Receipt Date: 20140902
  Transmission Date: 20150326
  Serious: Yes (Hospitalization)
  Sender: FDA-Public Use
  Company Number: CZ-SA-2014SA052714

PATIENT
  Age: 62 Year
  Sex: Male
  Weight: 104.5 kg

DRUGS (11)
  1. ALL OTHER THERAPEUTIC PRODUCTS [Concomitant]
     Active Substance: UNSPECIFIED INGREDIENT
  2. PRESTARIUM [Concomitant]
     Active Substance: PERINDOPRIL
     Dosage: 5/1,25MG TBL 1-0-0
  3. DIURETICS [Concomitant]
     Active Substance: UNSPECIFIED INGREDIENT
  4. METFORMIN [Concomitant]
     Active Substance: METFORMIN HYDROCHLORIDE
     Dosage: 500MG TBL 2-1-1
  5. INSUMAN [Concomitant]
     Active Substance: INSULIN HUMAN
     Dosage: 12-10-8
  6. HMG COA REDUCTASE INHIBITORS [Concomitant]
     Active Substance: UNSPECIFIED INGREDIENT
  7. LANTUS [Suspect]
     Active Substance: INSULIN GLARGINE
     Indication: PRODUCT USED FOR UNKNOWN INDICATION
     Route: 065
     Dates: start: 20130809
  8. TELMISARTAN. [Concomitant]
     Active Substance: TELMISARTAN
  9. ESSENTIALE FORTE [Concomitant]
     Dosage: CPS 2-2-2
  10. ANTIHYPERTENSIVES [Concomitant]
     Active Substance: UNSPECIFIED INGREDIENT
  11. MILURIT [Concomitant]
     Active Substance: ALLOPURINOL

REACTIONS (1)
  - Hepatitis E [Recovered/Resolved with Sequelae]

NARRATIVE: CASE EVENT DATE: 20140106
